FAERS Safety Report 18532015 (Version 3)
Quarter: 2021Q1

REPORT INFORMATION
  Report Type: Spontaneous
  Country: US (occurrence: US)
  Receive Date: 20201123
  Receipt Date: 20210315
  Transmission Date: 20210419
  Serious: Yes (Life-Threatening, Hospitalization, Other)
  Sender: FDA-Public Use
  Company Number: US-DRREDDYS-USA/USA/20/0129177

PATIENT
  Age: 73 Year
  Sex: Male

DRUGS (8)
  1. TAMSULOSIN [Concomitant]
     Active Substance: TAMSULOSIN
     Indication: PRODUCT USED FOR UNKNOWN INDICATION
     Route: 048
  2. AMIODARONE HYDROCHLORIDE. [Suspect]
     Active Substance: AMIODARONE HYDROCHLORIDE
     Route: 042
     Dates: start: 202003
  3. AMIODARONE HYDROCHLORIDE. [Suspect]
     Active Substance: AMIODARONE HYDROCHLORIDE
     Dosage: LOADING DOSE
     Route: 048
     Dates: start: 201903
  4. AMIODARONE HYDROCHLORIDE. [Suspect]
     Active Substance: AMIODARONE HYDROCHLORIDE
     Indication: ATRIAL FIBRILLATION
     Route: 048
  5. AMIODARONE HYDROCHLORIDE. [Suspect]
     Active Substance: AMIODARONE HYDROCHLORIDE
     Route: 042
     Dates: start: 202003
  6. AMIODARONE HYDROCHLORIDE. [Suspect]
     Active Substance: AMIODARONE HYDROCHLORIDE
     Route: 042
     Dates: start: 202003
  7. FINASTERIDE. [Concomitant]
     Active Substance: FINASTERIDE
     Indication: PRODUCT USED FOR UNKNOWN INDICATION
     Route: 048
  8. APIXABAN [Concomitant]
     Active Substance: APIXABAN
     Indication: PRODUCT USED FOR UNKNOWN INDICATION
     Route: 048

REACTIONS (16)
  - Toxicity to various agents [Recovered/Resolved]
  - Blood pressure systolic decreased [Recovered/Resolved]
  - Pulmonary toxicity [Recovered/Resolved]
  - Thrombocytopenia [Recovered/Resolved]
  - Organising pneumonia [Recovered/Resolved]
  - Acute kidney injury [Recovered/Resolved]
  - Bandaemia [Recovered/Resolved]
  - Bacteriuria [Recovered/Resolved]
  - Hepatic enzyme increased [Recovered/Resolved]
  - Pyrexia [Recovered/Resolved]
  - Lymphopenia [Recovered/Resolved]
  - Delirium [Recovered/Resolved]
  - Fibrosis [Recovered/Resolved]
  - Systemic inflammatory response syndrome [Recovered/Resolved]
  - Condition aggravated [Recovered/Resolved]
  - Multiple organ dysfunction syndrome [Recovered/Resolved]

NARRATIVE: CASE EVENT DATE: 202002
